FAERS Safety Report 6183701-7 (Version None)
Quarter: 2009Q2

REPORT INFORMATION
  Report Type: 
  Country: None (occurrence: None)
  Receive Date: 20090508
  Receipt Date: 20090430
  Transmission Date: 20091009
  Serious: Yes (Hospitalization)
  Sender: FDA-Public Use
  Company Number: GB-TEVA-193497ISR

PATIENT
  Age: 13 Month
  Sex: Male

DRUGS (1)
  1. SALBUTAMOL [Suspect]
     Route: 055

REACTIONS (1)
  - HYPERGLYCAEMIA [None]
